FAERS Safety Report 9215204 (Version 1)
Quarter: 2013Q2

REPORT INFORMATION
  Report Type: Spontaneous
  Country: US (occurrence: US)
  Receive Date: 20130405
  Receipt Date: 20130405
  Transmission Date: 20140414
  Serious: No
  Sender: FDA-Public Use
  Company Number: US-ASTRAZENECA-2013SE19787

PATIENT
  Age: 62 Year
  Sex: Female
  Weight: 55.8 kg

DRUGS (4)
  1. NEXIUM [Suspect]
     Indication: GASTROOESOPHAGEAL REFLUX DISEASE
     Route: 048
     Dates: start: 2005
  2. PEPSID [Concomitant]
  3. CALCIUM [Concomitant]
  4. VIT D [Concomitant]

REACTIONS (6)
  - Gastrooesophageal reflux disease [Recovered/Resolved]
  - Osteopenia [Not Recovered/Not Resolved]
  - Gastritis [Not Recovered/Not Resolved]
  - Intentional drug misuse [Unknown]
  - Drug dose omission [Unknown]
  - Drug ineffective [Unknown]
